FAERS Safety Report 5534172-2 (Version None)
Quarter: 2007Q4

REPORT INFORMATION
  Report Type: 
  Country: None (occurrence: None)
  Receive Date: 20071205
  Receipt Date: 20071126
  Transmission Date: 20080405
  Serious: Yes (Other)
  Sender: FDA-Public Use
  Company Number: CA-BRACCO-BDI-010621

PATIENT
  Sex: Female

DRUGS (2)
  1. MULTIHANCE [Suspect]
     Route: 042
     Dates: start: 20071029, end: 20071029
  2. MULTIHANCE [Suspect]
     Route: 042
     Dates: start: 20071029, end: 20071029

REACTIONS (6)
  - ANAPHYLACTOID REACTION [None]
  - ANOXIC ENCEPHALOPATHY [None]
  - INTESTINAL ISCHAEMIA [None]
  - LACTIC ACIDOSIS [None]
  - MYOPATHY [None]
  - RENAL FAILURE [None]
